FAERS Safety Report 7236794-X (Version None)
Quarter: 2011Q1

REPORT INFORMATION
  Report Type: 
  Country: None (occurrence: None)
  Receive Date: 20110120
  Receipt Date: 20110105
  Transmission Date: 20110831
  Serious: Yes (Other)
  Sender: FDA-Public Use
  Company Number: US-US-EMD SERONO, INC.-232882K08USA

PATIENT
  Sex: Female

DRUGS (6)
  1. XANAX [Concomitant]
     Indication: MOOD SWINGS
  2. ANTIVERT [Concomitant]
     Indication: DIZZINESS
  3. IBUPROFEN [Concomitant]
     Indication: PREMEDICATION
  4. LAMICTAL [Concomitant]
     Indication: CONVULSION
     Dates: end: 20090101
  5. REBIF [Suspect]
     Indication: MULTIPLE SCLEROSIS
     Route: 058
     Dates: start: 20021029
  6. FOLIC ACID [Concomitant]
     Indication: INCREASED TENDENCY TO BRUISE

REACTIONS (3)
  - LOSS OF CONSCIOUSNESS [None]
  - CONVULSION [None]
  - DIZZINESS [None]
